FAERS Safety Report 14021707 (Version 1)
Quarter: 2017Q3

REPORT INFORMATION
  Report Type: Spontaneous
  Country: US (occurrence: US)
  Receive Date: 20170928
  Receipt Date: 20170928
  Transmission Date: 20171128
  Serious: No
  Sender: FDA-Public Use
  Company Number: US-CLOVIS ONCOLOGY-CLO-2017-000967

PATIENT
  Age: 73 Year
  Sex: Female

DRUGS (2)
  1. RUBRACA [Suspect]
     Active Substance: RUCAPARIB CAMSYLATE
     Indication: OVARIAN CANCER
     Dosage: 600 MG, BID
     Route: 048
     Dates: start: 20170815
  2. FAMOTIDINE. [Concomitant]
     Active Substance: FAMOTIDINE
     Indication: HIATUS HERNIA
     Dosage: UNK
     Route: 065

REACTIONS (2)
  - Peripheral swelling [Not Recovered/Not Resolved]
  - Hernia pain [Recovering/Resolving]

NARRATIVE: CASE EVENT DATE: 20170815
